FAERS Safety Report 5281118-0 (Version None)
Quarter: 2007Q1

REPORT INFORMATION
  Report Type: 
  Country: None (occurrence: None)
  Receive Date: 20070323
  Receipt Date: 20070314
  Transmission Date: 20070707
  Serious: Yes (Death, Other)
  Sender: FDA-Public Use
  Company Number: 009-C5013-06121052

PATIENT
  Age: 77 Year
  Sex: Male
  Weight: 75 kg

DRUGS (9)
  1. CC-5013 (LENALIDOMIDE) (CAPSULES) [Suspect]
     Indication: MULTIPLE MYELOMA
     Dosage: 25 MG, ORAL
     Route: 048
     Dates: start: 20061023, end: 20061215
  2. DEXAMETHASONE TAB [Suspect]
     Indication: MULTIPLE MYELOMA
     Dosage: 40 MG, DAY 1-4, 9-12, 17-20 REPEATED ON DAY 29
  3. VITAMIN B (VITAMIN B) [Concomitant]
  4. PANTOPRAZOLE SODIUM [Concomitant]
  5. CITALOPRAM HYDROBROMIDE [Concomitant]
  6. ALLOPURINOL [Concomitant]
  7. HYDROMORPHIN DICLOFENAC (HYDROMORPHONE HYDROCHLORIDE) [Concomitant]
  8. DARBEPOETIN (DARBEPOETIN ALFA) [Concomitant]
  9. ENOXAPARIN SODIUM [Concomitant]

REACTIONS (5)
  - HYPERCALCAEMIA [None]
  - MALIGNANT NEOPLASM PROGRESSION [None]
  - MULTIPLE MYELOMA [None]
  - NEUTROPENIA [None]
  - THROMBOCYTOPENIA [None]
